FAERS Safety Report 8586929-1 (Version None)
Quarter: 2012Q3

REPORT INFORMATION
  Report Type: 
  Country: None (occurrence: None)
  Receive Date: 20120810
  Receipt Date: 20120731
  Transmission Date: 20120928
  Serious: Yes (Other)
  Sender: FDA-Public Use
  Company Number: JP-UCBSA-057404

PATIENT
  Age: 41 Year
  Sex: Female
  Weight: 29.4 kg

DRUGS (16)
  1. KEPPRA [Suspect]
     Route: 048
     Dates: start: 20120218, end: 20120427
  2. PANVITAN [Concomitant]
     Dosage: DAILY DOSE:0.5 G
     Route: 048
  3. KEPPRA [Suspect]
     Route: 048
     Dates: start: 20120209, end: 20120217
  4. GASMOTIN [Concomitant]
     Dosage: DAILY DOSE:15 MG
     Route: 048
  5. KEPPRA [Suspect]
     Indication: EPILEPSY
     Route: 048
     Dates: start: 20120504, end: 20120507
  6. DANTRIUM [Concomitant]
     Dosage: DAILY DOSE: 3 DF
     Route: 048
  7. RIBOFLAVIN TAB [Concomitant]
     Dosage: DAILY DOSE: 10 MG
     Route: 048
  8. PROMAC [Concomitant]
     Dosage: DAILY DOSE : 1 G
     Route: 048
  9. ARTANE [Concomitant]
     Dosage: DAILY DOSE: 6MG
     Route: 048
  10. MEILAX [Concomitant]
     Dosage: DAILY DOSE: 3 MG
     Route: 048
  11. GASCON [Concomitant]
     Dosage: DAILY DOSE: 120 MG
     Route: 048
  12. L-CARTIN [Concomitant]
     Dosage: DAILY DOSE: 600 MG
     Route: 048
  13. HALOPERIDOL [Concomitant]
     Dosage: DAILY DOSE: 8 MG
     Route: 048
  14. MUCODYNE [Concomitant]
     Dosage: DAILY DOSE: 1500 MG
     Route: 048
  15. FAMOTIDINE [Concomitant]
     Dosage: DAILY DOSE: 20 MG
     Route: 048
  16. TEGRETOL [Concomitant]
     Dosage: DAILY DOSE: 500 MG
     Route: 048

REACTIONS (1)
  - NEUTROPHIL COUNT DECREASED [None]
